FAERS Safety Report 24349325 (Version 2)
Quarter: 2024Q4

REPORT INFORMATION
  Report Type: Spontaneous
  Country: CH (occurrence: CH)
  Receive Date: 20240923
  Receipt Date: 20241005
  Transmission Date: 20250115
  Serious: Yes (Life-Threatening, Hospitalization)
  Sender: ACCORD
  Company Number: CH-MLMSERVICE-20240905-PI184300-00140-4

PATIENT
  Age: 61 Year
  Sex: Female

DRUGS (5)
  1. ETOPOSIDE [Suspect]
     Active Substance: ETOPOSIDE
     Indication: Metastases to central nervous system
     Dosage: 100 MG/M2 (DOSE PROTOCOL 190 MG) 1ST CYCLE
     Dates: start: 2019, end: 2019
  2. CISPLATIN [Concomitant]
     Active Substance: CISPLATIN
     Indication: Small cell lung cancer
     Dosage: FIRST RECEIVED CISPLATIN 45 MG 1ST CYCLE
     Dates: start: 2019, end: 2019
  3. CISPLATIN [Concomitant]
     Active Substance: CISPLATIN
     Indication: Small cell lung cancer
     Dosage: CISPLATIN 25 MG/M2 (DOSE PROTOCOL 45 MG)
     Dates: start: 201911, end: 202001
  4. CISPLATIN [Concomitant]
     Active Substance: CISPLATIN
     Indication: Metastases to central nervous system
     Dosage: FIRST RECEIVED CISPLATIN 45 MG 1ST CYCLE
     Dates: start: 2019, end: 2019
  5. ETOPOSIDE [Suspect]
     Active Substance: ETOPOSIDE
     Indication: Small cell lung cancer
     Dosage: 100MG SECOND CYCLE
     Dates: start: 201911, end: 202001

REACTIONS (4)
  - Cardio-respiratory arrest [Recovering/Resolving]
  - Anaphylactic shock [Recovering/Resolving]
  - Anaphylactic reaction [Recovering/Resolving]
  - Mast cell activation syndrome [Recovering/Resolving]

NARRATIVE: CASE EVENT DATE: 20190101
